FAERS Safety Report 15882016 (Version 3)
Quarter: 2020Q2

REPORT INFORMATION
  Report Type: Spontaneous
  Country: BE (occurrence: BE)
  Receive Date: 20190128
  Receipt Date: 20200423
  Transmission Date: 20200713
  Serious: Yes (Other)
  Sender: FDA-Public Use
  Company Number: BE-JNJFOC-20180403581

PATIENT

DRUGS (5)
  1. AZATHIOPRINE. [Concomitant]
     Active Substance: AZATHIOPRINE
     Route: 065
  2. 6-MP [Concomitant]
     Active Substance: MERCAPTOPURINE
     Route: 065
  3. METHOTREXATE. [Concomitant]
     Active Substance: METHOTREXATE
     Route: 065
  4. STELARA [Suspect]
     Active Substance: USTEKINUMAB
     Dosage: SUBCUTANEOUS
     Route: 042
  5. STELARA [Suspect]
     Active Substance: USTEKINUMAB
     Indication: CROHN^S DISEASE
     Dosage: INTRAVENOUS
     Route: 042

REACTIONS (16)
  - Myalgia [Unknown]
  - Cytomegalovirus infection [Unknown]
  - Fistula [Unknown]
  - Exposure during pregnancy [Unknown]
  - Pyelonephritis [Unknown]
  - Pneumonia [Unknown]
  - Arthralgia [Unknown]
  - Deep vein thrombosis [Unknown]
  - Abdominal abscess [Unknown]
  - Infusion related reaction [Unknown]
  - Therapeutic response decreased [Unknown]
  - Gastroenteritis [Unknown]
  - Hypersensitivity [Unknown]
  - Clostridial infection [Unknown]
  - Abortion spontaneous [Unknown]
  - Infection [Unknown]
